FAERS Safety Report 6881431-7 (Version None)
Quarter: 2010Q3

REPORT INFORMATION
  Report Type: 
  Country: None (occurrence: None)
  Receive Date: 20100728
  Receipt Date: 20100728
  Transmission Date: 20110219
  Serious: Yes (Death)
  Sender: FDA-Public Use
  Company Number: None

PATIENT
  Sex: Male
  Weight: 130.1823 kg

DRUGS (1)
  1. ULTRAM [Suspect]
     Indication: RADICULOPATHY
     Dosage: 50MG EVERY 8 HOURS PO
     Route: 048
     Dates: start: 20100526, end: 20100531

REACTIONS (3)
  - COMPLETED SUICIDE [None]
  - DRUG INEFFECTIVE [None]
  - GUN SHOT WOUND [None]
